FAERS Safety Report 10502006 (Version 2)
Quarter: 2014Q4

REPORT INFORMATION
  Report Type: Spontaneous
  Country: US (occurrence: US)
  Receive Date: 20141007
  Receipt Date: 20141218
  Transmission Date: 20150528
  Serious: No
  Sender: FDA-Public Use
  Company Number: US-009507513-1410USA002382

PATIENT
  Age: 32 Year
  Sex: Female
  Weight: 43.54 kg

DRUGS (1)
  1. MIRALAX [Suspect]
     Active Substance: POLYETHYLENE GLYCOL 3350
     Indication: CONSTIPATION
     Dosage: 17 G, QD
     Route: 048
     Dates: start: 20140927

REACTIONS (2)
  - Incorrect drug administration duration [Unknown]
  - Vomiting [Unknown]

NARRATIVE: CASE EVENT DATE: 201409
